FAERS Safety Report 5162587-3 (Version None)
Quarter: 2006Q4

REPORT INFORMATION
  Report Type: 
  Country: None (occurrence: None)
  Receive Date: 20061201
  Receipt Date: 20061127
  Transmission Date: 20070319
  Serious: Yes (Life-Threatening)
  Sender: FDA-Public Use
  Company Number: PHNU2006DE03974

PATIENT
  Age: 70 Year
  Sex: Female

DRUGS (3)
  1. TEGRETOL [Suspect]
     Dosage: 200 MG/DAY
     Route: 048
  2. ATOSIL [Concomitant]
  3. RISPERDAL [Concomitant]

REACTIONS (3)
  - PNEUMONIA [None]
  - RESPIRATORY FAILURE [None]
  - SEPTIC SHOCK [None]
